FAERS Safety Report 15246729 (Version 4)
Quarter: 2019Q3

REPORT INFORMATION
  Report Type: Spontaneous
  Country: US (occurrence: US)
  Receive Date: 20180806
  Receipt Date: 20190726
  Transmission Date: 20191004
  Serious: Yes (Other)
  Sender: FDA-Public Use
  Company Number: US-VIFOR (INTERNATIONAL) INC.-VIT-2018-07608

PATIENT
  Sex: Female

DRUGS (16)
  1. CALCITRIOL. [Concomitant]
     Active Substance: CALCITRIOL
  2. ALBUTEROL SULFATE. [Concomitant]
     Active Substance: ALBUTEROL SULFATE
  3. PRAVASTATIN SODIUM. [Concomitant]
     Active Substance: PRAVASTATIN SODIUM
  4. ADVAIR DISKUS [Concomitant]
     Active Substance: FLUTICASONE PROPIONATE\SALMETEROL XINAFOATE
  5. LOSARTAN POTASSIUM. [Concomitant]
     Active Substance: LOSARTAN POTASSIUM
  6. MURO 128 [Concomitant]
     Active Substance: SODIUM CHLORIDE
  7. VELTASSA [Suspect]
     Active Substance: PATIROMER
     Indication: HYPERKALAEMIA
     Route: 048
     Dates: start: 20180427
  8. FUROSEMIDE. [Concomitant]
     Active Substance: FUROSEMIDE
  9. GABAPENTIN. [Concomitant]
     Active Substance: GABAPENTIN
  10. GLIPIZIDE. [Concomitant]
     Active Substance: GLIPIZIDE
  11. FERROUS SULFATE. [Concomitant]
     Active Substance: FERROUS SULFATE
  12. METOPROLOL TARTRATE. [Concomitant]
     Active Substance: METOPROLOL TARTRATE
  13. SPIRIVA [Concomitant]
     Active Substance: TIOTROPIUM BROMIDE MONOHYDRATE
  14. VITAMIN D [Concomitant]
     Active Substance: VITAMIN D NOS
  15. ACETAZOLAMIDE. [Concomitant]
     Active Substance: ACETAZOLAMIDE
  16. PRESERVISION AREDS 2 [Concomitant]
     Active Substance: MINERALS\VITAMINS

REACTIONS (7)
  - Limb injury [Unknown]
  - Product dose omission [Unknown]
  - Hypoacusis [Unknown]
  - Thrombosis [Unknown]
  - Fall [Unknown]
  - Laboratory test abnormal [Unknown]
  - Head injury [Unknown]

NARRATIVE: CASE EVENT DATE: 2018
